FAERS Safety Report 15398364 (Version 1)
Quarter: 2018Q3

REPORT INFORMATION
  Report Type: Spontaneous
  Country: US (occurrence: US)
  Receive Date: 20180918
  Receipt Date: 20180918
  Transmission Date: 20181010
  Serious: No
  Sender: FDA-Public Use
  Company Number: US-TEVA-2018-US-953828

PATIENT
  Age: 77 Year
  Sex: Male
  Weight: 82 kg

DRUGS (4)
  1. QVAR REDIHALER [Suspect]
     Active Substance: BECLOMETHASONE DIPROPIONATE
     Route: 065
     Dates: start: 2018
  2. QVAR [Suspect]
     Active Substance: BECLOMETHASONE DIPROPIONATE
     Indication: DYSPNOEA
     Route: 065
  3. TRAVATAN [Concomitant]
     Active Substance: TRAVOPROST
     Route: 047
  4. COMBIVENT [Concomitant]
     Active Substance: ALBUTEROL SULFATE\IPRATROPIUM BROMIDE

REACTIONS (7)
  - Drug effect incomplete [Unknown]
  - Dyspnoea [Unknown]
  - Oropharyngeal pain [Unknown]
  - Productive cough [Unknown]
  - Blood pressure increased [Unknown]
  - Sneezing [Unknown]
  - Cough [Unknown]

NARRATIVE: CASE EVENT DATE: 201806
